FAERS Safety Report 24348298 (Version 2)
Quarter: 2024Q4

REPORT INFORMATION
  Report Type: Spontaneous
  Country: US (occurrence: US)
  Receive Date: 20240923
  Receipt Date: 20241127
  Transmission Date: 20250114
  Serious: No
  Sender: CSL BEHRING
  Company Number: US-BEH-2024178651

PATIENT
  Age: 47 Year
  Sex: Male

DRUGS (2)
  1. PRIVIGEN [Suspect]
     Active Substance: HUMAN IMMUNOGLOBULIN G
     Dosage: 55 G, EVERY 4 WEEKS
     Route: 042
  2. PRIVIGEN [Suspect]
     Active Substance: HUMAN IMMUNOGLOBULIN G
     Dosage: 208ML/ 550ML
     Route: 042
     Dates: start: 20240908

REACTIONS (6)
  - Body temperature increased [Unknown]
  - Chills [Unknown]
  - Heart rate increased [Unknown]
  - Blood pressure decreased [Unknown]
  - Body temperature increased [Unknown]
  - Body temperature increased [Unknown]

NARRATIVE: CASE EVENT DATE: 20240908
